FAERS Safety Report 26174195 (Version 1)
Quarter: 2025Q4

REPORT INFORMATION
  Report Type: Spontaneous
  Country: US (occurrence: None)
  Receive Date: 20251217
  Receipt Date: 20251217
  Transmission Date: 20260117
  Serious: Yes (Other)
  Sender: FDA-CTU
  Company Number: None

PATIENT
  Age: 60 Year
  Sex: Female

DRUGS (2)
  1. BENLYSTA [Suspect]
     Active Substance: BELIMUMAB
     Dosage: 200MG EVERY WEEKS
  2. PREDNISONE [Suspect]
     Active Substance: PREDNISONE

REACTIONS (13)
  - Nasopharyngitis [None]
  - Viral infection [None]
  - Systemic lupus erythematosus [None]
  - Fatigue [None]
  - Joint swelling [None]
  - Therapy change [None]
  - Dry eye [None]
  - Periorbital disorder [None]
  - Skin depigmentation [None]
  - Nausea [None]
  - Pyrexia [None]
  - Chest pain [None]
  - Oropharyngeal pain [None]
